FAERS Safety Report 7124050 (Version 4)
Quarter: 2014Q2

REPORT INFORMATION
  Report Type: Spontaneous
  Country: US (occurrence: US)
  Receive Date: 20090921
  Receipt Date: 20131018
  Transmission Date: 20141212
  Serious: Yes (Other)
  Sender: FDA-Public Use
  Company Number: US-PFIZER INC-2009268973

PATIENT
  Age: 56 Year
  Sex: Female

DRUGS (11)
  1. PROVERA [Suspect]
     Indication: HORMONE REPLACEMENT THERAPY
     Dosage: 5 MG, UNK
     Route: 048
     Dates: start: 19950824
  2. MEDROXYPROGESTERONE ACETATE [Suspect]
     Indication: HORMONE REPLACEMENT THERAPY
     Dosage: 5 MG, UNK
     Route: 048
     Dates: start: 19991202
  3. PREMARIN [Suspect]
     Indication: HORMONE REPLACEMENT THERAPY
     Dosage: UNK
  4. PREMPRO [Suspect]
     Indication: HORMONE REPLACEMENT THERAPY
     Dosage: 2.5 MG, UNK
     Route: 048
     Dates: start: 200010, end: 200208
  5. ESTRADIOL [Suspect]
     Dosage: UNK
  6. CYCRIN [Suspect]
     Indication: HORMONE REPLACEMENT THERAPY
     Dosage: 5 MG, UNK
     Dates: start: 19970404
  7. MEDROXYPROGESTERONE ACETATE [Suspect]
     Indication: HORMONE REPLACEMENT THERAPY
     Dosage: 5 MG, UNK
  8. ESTRACE [Suspect]
     Indication: HORMONE REPLACEMENT THERAPY
     Dosage: 1 MG, UNK
     Dates: start: 19950824
  9. ESTRADIOL [Suspect]
     Indication: HORMONE REPLACEMENT THERAPY
     Dosage: 1 MG, UNK
     Dates: start: 19970609
  10. ESTRADIOL [Suspect]
     Indication: HORMONE REPLACEMENT THERAPY
     Dosage: UNK
     Dates: start: 19990901
  11. ESTROGEN NOS [Suspect]
     Dosage: UNK

REACTIONS (1)
  - Invasive ductal breast carcinoma [Unknown]
